FAERS Safety Report 4720577-6 (Version None)
Quarter: 2005Q3

REPORT INFORMATION
  Report Type: 
  Country: None (occurrence: None)
  Receive Date: 20050719
  Receipt Date: 20050705
  Transmission Date: 20060218
  Serious: Yes (Death, Other)
  Sender: FDA-Public Use
  Company Number: 2003147785US

PATIENT
  Age: 62 Year
  Sex: Female

DRUGS (1)
  1. CELEBREX [Suspect]
     Indication: ILL-DEFINED DISORDER
     Dosage: ORAL
     Route: 048
     Dates: start: 20010801

REACTIONS (14)
  - ACUTE MYOCARDIAL INFARCTION [None]
  - ARRHYTHMIA [None]
  - BLOOD PRESSURE IMMEASURABLE [None]
  - BLOOD PRESSURE INCREASED [None]
  - CARDIAC ARREST [None]
  - CARDIAC FAILURE [None]
  - CARDIOMEGALY [None]
  - OBESITY [None]
  - OEDEMA [None]
  - PULMONARY EMBOLISM [None]
  - PULSE ABSENT [None]
  - PUPIL FIXED [None]
  - RENAL FAILURE [None]
  - RESPIRATORY ARREST [None]
